FAERS Safety Report 8548350-1 (Version None)
Quarter: 2012Q3

REPORT INFORMATION
  Report Type: 
  Country: None (occurrence: None)
  Receive Date: 20120719
  Receipt Date: 20120719
  Transmission Date: 20120928
  Serious: No
  Sender: FDA-Public Use
  Company Number: None

PATIENT
  Sex: Female
  Weight: 49.8957 kg

DRUGS (1)
  1. DOXYCYCLINE HYCLATE [Suspect]
     Indication: DERMATITIS
     Dosage: 100 MG 1X-2X DAILY ORAL
     Route: 048
     Dates: start: 20120104, end: 20120201

REACTIONS (5)
  - ECONOMIC PROBLEM [None]
  - ABDOMINAL DISCOMFORT [None]
  - OESOPHAGEAL ULCER [None]
  - CHEST PAIN [None]
  - DYSPHAGIA [None]
